FAERS Safety Report 6786183-7 (Version None)
Quarter: 2010Q2

REPORT INFORMATION
  Report Type: 
  Country: None (occurrence: None)
  Receive Date: 20100622
  Receipt Date: 20100622
  Transmission Date: 20101027
  Serious: Yes (Life-Threatening, Other)
  Sender: FDA-Public Use
  Company Number: None

PATIENT
  Age: 73 Year
  Sex: Female
  Weight: 99.7913 kg

DRUGS (1)
  1. FENOFIBRATE [Suspect]
     Indication: BLOOD TRIGLYCERIDES INCREASED
     Dosage: ONE DAILY PO
     Route: 048
     Dates: start: 20100614, end: 20100620

REACTIONS (4)
  - ARRHYTHMIA [None]
  - BONE PAIN [None]
  - MUSCULOSKELETAL PAIN [None]
  - POLLAKIURIA [None]
